FAERS Safety Report 19029360 (Version 1)
Quarter: 2021Q1

REPORT INFORMATION
  Report Type: Report from Study
  Country: US (occurrence: US)
  Receive Date: 20210319
  Receipt Date: 20210319
  Transmission Date: 20210420
  Serious: Yes (Other)
  Sender: FDA-Public Use
  Company Number: US-GILEAD-2021-0521480

PATIENT
  Sex: Female
  Weight: 58.05 kg

DRUGS (4)
  1. AMBRISENTAN [Suspect]
     Active Substance: AMBRISENTAN
     Indication: PULMONARY ARTERIAL HYPERTENSION
     Dosage: UNK
     Route: 065
  2. REMODULIN [Suspect]
     Active Substance: TREPROSTINIL
     Indication: PULMONARY ARTERIAL HYPERTENSION
     Dosage: 102 NG/KG/MIN
     Route: 042
     Dates: start: 20191205
  3. REVATIO [Concomitant]
     Active Substance: SILDENAFIL CITRATE
  4. ELIQUIS [Concomitant]
     Active Substance: APIXABAN

REACTIONS (3)
  - Device dislocation [Unknown]
  - Product dose omission issue [Unknown]
  - Central venous catheterisation [Unknown]
